FAERS Safety Report 4445022-X (Version None)
Quarter: 2004Q3

REPORT INFORMATION
  Report Type: 
  Country: None (occurrence: None)
  Receive Date: 20040908
  Receipt Date: 20040908
  Transmission Date: 20050211
  Serious: Yes (Other)
  Sender: FDA-Public Use
  Company Number: None

PATIENT
  Age: 35 Year
  Sex: Male
  Weight: 81.6475 kg

DRUGS (2)
  1. LINEZOLID [Suspect]
     Indication: SHUNT INFECTION
     Dosage: 600 MG   TWICE DAILY   ORAL
     Route: 048
     Dates: start: 20040716, end: 20040902
  2. CEFTRIAXONE [Concomitant]

REACTIONS (2)
  - HAEMOGLOBIN DECREASED [None]
  - RETICULOCYTE COUNT DECREASED [None]
